FAERS Safety Report 5066418-1 (Version None)
Quarter: 2006Q3

REPORT INFORMATION
  Report Type: 
  Country: None (occurrence: None)
  Receive Date: 20060801
  Receipt Date: 20060213
  Transmission Date: 20061208
  Serious: Yes (Other)
  Sender: FDA-Public Use
  Company Number: PHNU2006DE00925

PATIENT
  Sex: Male
  Weight: 96 kg

DRUGS (2)
  1. CIBADREX [Suspect]
     Indication: HYPERTENSION
     Dosage: 1 DF, QD
     Route: 048
     Dates: start: 20060101, end: 20060101
  2. CARMEN [Concomitant]
     Dosage: 20 MG/D
     Route: 048
     Dates: start: 20060101, end: 20060202

REACTIONS (3)
  - BLISTER [None]
  - ERYTHEMA MULTIFORME [None]
  - RASH ERYTHEMATOUS [None]
